FAERS Safety Report 9383549 (Version 1)
Quarter: 2013Q3

REPORT INFORMATION
  Report Type: Spontaneous
  Country: US (occurrence: US)
  Receive Date: 20130704
  Receipt Date: 20130704
  Transmission Date: 20140515
  Serious: No
  Sender: FDA-Public Use
  Company Number: US-PFIZER INC-2013195574

PATIENT
  Sex: Female

DRUGS (2)
  1. LEVOXYL [Suspect]
     Indication: THYROID DISORDER
     Dosage: 200 UG, 1X/DAY
     Route: 048
  2. LEVOXYL [Suspect]
     Dosage: 175 UG, 1X/DAY
     Route: 048

REACTIONS (2)
  - Product quality issue [Unknown]
  - Thyroid function test abnormal [Unknown]
